FAERS Safety Report 7932053-8 (Version None)
Quarter: 2011Q4

REPORT INFORMATION
  Report Type: 
  Country: None (occurrence: None)
  Receive Date: 20111121
  Receipt Date: 20110902
  Transmission Date: 20120403
  Serious: No
  Sender: FDA-Public Use
  Company Number: US-BAYER-2011-088150

PATIENT
  Sex: Female

DRUGS (4)
  1. ALEVE (CAPLET) [Suspect]
     Indication: INFLAMMATION
  2. TYLENOL REGULAR [Concomitant]
  3. ALEVE (CAPLET) [Suspect]
     Indication: PAIN
     Route: 048
  4. IBUPROFEN (ADVIL) [Concomitant]

REACTIONS (2)
  - PAIN [None]
  - INFLAMMATION [None]
